FAERS Safety Report 21353967 (Version 1)
Quarter: 2022Q3

REPORT INFORMATION
  Report Type: Spontaneous
  Country: DE (occurrence: DE)
  Receive Date: 20220920
  Receipt Date: 20220920
  Transmission Date: 20221027
  Serious: Yes (Death, Hospitalization)
  Sender: FDA-Public Use
  Company Number: None

PATIENT
  Age: 67 Year
  Sex: Male

DRUGS (1)
  1. ALTEPLASE [Suspect]
     Active Substance: ALTEPLASE
     Indication: Arterial occlusive disease
     Dosage: 3X 20MG. 12-SEP-2022 AT 10:30 A.M.?13-SEP-2022 APPROXIMATELY AT 3:00 A.M.
     Route: 013
     Dates: start: 20220912, end: 20220913

REACTIONS (2)
  - Haemorrhage intracranial [Fatal]
  - Disturbance in attention [Not Recovered/Not Resolved]

NARRATIVE: CASE EVENT DATE: 20220913
